FAERS Safety Report 25291603 (Version 5)
Quarter: 2025Q2

REPORT INFORMATION
  Report Type: Spontaneous
  Country: US (occurrence: US)
  Receive Date: 20250510
  Receipt Date: 20250622
  Transmission Date: 20250716
  Serious: No
  Sender: SANOFI AVENTIS
  Company Number: US-SA-2025SA121630

PATIENT
  Age: 31 Year
  Sex: Female

DRUGS (1)
  1. DUPIXENT [Suspect]
     Active Substance: DUPILUMAB
     Indication: Asthma
     Dosage: 300 MG, QOW
     Route: 058

REACTIONS (8)
  - Injection site bruising [Unknown]
  - Wrong technique in product usage process [Unknown]
  - Erythema [Unknown]
  - Therapeutic response shortened [Unknown]
  - Injection site swelling [Unknown]
  - Injection site pain [Unknown]
  - Hypersensitivity [Unknown]
  - Dyspnoea [Unknown]
